FAERS Safety Report 11163316 (Version 1)
Quarter: 2015Q2

REPORT INFORMATION
  Report Type: Spontaneous
  Country: US (occurrence: US)
  Receive Date: 20150604
  Receipt Date: 20150604
  Transmission Date: 20150821
  Serious: Yes (Other)
  Sender: FDA-Public Use
  Company Number: US-MALLINCKRODT-T201502814

PATIENT
  Age: 73 Year
  Sex: Female

DRUGS (3)
  1. METHADONE [Suspect]
     Active Substance: METHADONE HYDROCHLORIDE
     Indication: RESTLESS LEGS SYNDROME
     Dosage: 5 MG, UNK
     Route: 065
     Dates: start: 20150414, end: 20150422
  2. HYDROCODONE BITARTRATE AND ACETAMINOPHEN [Concomitant]
     Active Substance: ACETAMINOPHEN\HYDROCODONE BITARTRATE
     Dosage: UNK
     Dates: end: 20150414
  3. NEUPRO [Suspect]
     Active Substance: ROTIGOTINE
     Indication: RESTLESS LEGS SYNDROME
     Dosage: 2 MG, UNK
     Route: 065

REACTIONS (5)
  - Vomiting [Recovered/Resolved]
  - Off label use [Recovered/Resolved]
  - Accidental overdose [Recovered/Resolved]
  - Loss of consciousness [Recovered/Resolved]
  - Drug interaction [Recovered/Resolved]

NARRATIVE: CASE EVENT DATE: 20150421
